FAERS Safety Report 4351359-5 (Version None)
Quarter: 2004Q2

REPORT INFORMATION
  Report Type: 
  Country: None (occurrence: None)
  Receive Date: 20040430
  Receipt Date: 20040430
  Transmission Date: 20050107
  Serious: No
  Sender: FDA-Public Use
  Company Number: None

PATIENT
  Sex: Female
  Weight: 100.8 kg

DRUGS (3)
  1. PRIMIDONE [Suspect]
     Indication: COMPLEX PARTIAL SEIZURES
     Dosage: 375 MG PO BID
     Route: 048
  2. TEGRETOL [Concomitant]
  3. NEURONTIN [Concomitant]

REACTIONS (2)
  - CONVULSION [None]
  - PHARMACEUTICAL PRODUCT COMPLAINT [None]
